FAERS Safety Report 7423356-4 (Version None)
Quarter: 2011Q2

REPORT INFORMATION
  Report Type: 
  Country: None (occurrence: None)
  Receive Date: 20110419
  Receipt Date: 20110405
  Transmission Date: 20111010
  Serious: Yes (Other)
  Sender: FDA-Public Use
  Company Number: PHHY2009BR19804

PATIENT
  Sex: Female

DRUGS (2)
  1. DIOVAN [Suspect]
     Indication: HYPERTENSION
     Dosage: 80 MG, UNK
     Route: 048
     Dates: end: 20071001
  2. DIOVAN [Suspect]
     Dosage: 80 MG, UNK
     Route: 048
     Dates: start: 20090401, end: 20090516

REACTIONS (5)
  - DRUG EXPOSURE DURING PREGNANCY [None]
  - PREMATURE LABOUR [None]
  - DRUG EXPOSURE VIA BREAST MILK [None]
  - PRE-ECLAMPSIA [None]
  - WEIGHT DECREASED [None]
